FAERS Safety Report 8091345-5 (Version None)
Quarter: 2012Q1

REPORT INFORMATION
  Report Type: 
  Country: None (occurrence: None)
  Receive Date: 20120131
  Receipt Date: 20120119
  Transmission Date: 20120608
  Serious: Yes (Hospitalization, Other)
  Sender: FDA-Public Use
  Company Number: US-ELI_LILLY_AND_COMPANY-US201201006537

PATIENT
  Age: 50 Year
  Sex: Female

DRUGS (7)
  1. ABILIFY [Concomitant]
     Dosage: 1 MG, UNKNOWN
  2. COUMADIN [Concomitant]
     Dosage: UNK, UNKNOWN
  3. PLAQUENIL [Concomitant]
     Dosage: UNK, UNKNOWN
  4. ARIXTRA [Concomitant]
     Dosage: UNK, UNKNOWN
  5. ABILIFY [Concomitant]
     Dosage: 5 MG, UNKNOWN
  6. CYMBALTA [Suspect]
     Indication: FIBROMYALGIA
     Dosage: 60 MG, QD
  7. PREDNISONE TAB [Concomitant]
     Dosage: UNK, UNKNOWN

REACTIONS (6)
  - THROMBOSIS [None]
  - COAGULOPATHY [None]
  - HAEMORRHAGE [None]
  - INTERNATIONAL NORMALISED RATIO INCREASED [None]
  - PROTHROMBIN TIME PROLONGED [None]
  - DEPRESSION [None]
